FAERS Safety Report 16675522 (Version 1)
Quarter: 2019Q3

REPORT INFORMATION
  Report Type: Spontaneous
  Country: DE (occurrence: DE)
  Receive Date: 20190806
  Receipt Date: 20190806
  Transmission Date: 20191004
  Serious: Yes (Other)
  Sender: FDA-Public Use
  Company Number: DE-BRISTOL-MYERS SQUIBB COMPANY-BMS-2019-076122

PATIENT
  Age: 48 Year
  Sex: Female

DRUGS (1)
  1. ELIQUIS [Suspect]
     Active Substance: APIXABAN
     Indication: PRODUCT USED FOR UNKNOWN INDICATION
     Dosage: 5 MILLIGRAM, BID
     Route: 065

REACTIONS (10)
  - Dyspnoea [Unknown]
  - Fibrin D dimer increased [Unknown]
  - Dry skin [Unknown]
  - Rash [Unknown]
  - Menorrhagia [Unknown]
  - Pulmonary fibrosis [Unknown]
  - Epistaxis [Unknown]
  - Eye haemorrhage [Unknown]
  - Flatulence [Unknown]
  - Myalgia [Unknown]
